FAERS Safety Report 8854927 (Version 1)
Quarter: 2012Q4

REPORT INFORMATION
  Report Type: 
  Country: US (occurrence: US)
  Receive Date: 20121023
  Receipt Date: 20121023
  Transmission Date: 20130627
  Serious: No
  Sender: FDA-Public Use
  Company Number: US-009507513-1210USA009206

PATIENT
  Age: 26 Year
  Sex: Male

DRUGS (1)
  1. DULERA [Suspect]
     Indication: ASTHMA
     Dosage: 2 DF (2 puffs), bid
     Route: 055
     Dates: start: 201208, end: 201208

REACTIONS (1)
  - Headache [Recovered/Resolved]
